FAERS Safety Report 5711407-4 (Version None)
Quarter: 2008Q2

REPORT INFORMATION
  Report Type: 
  Country: None (occurrence: None)
  Receive Date: 20080421
  Receipt Date: 20080410
  Transmission Date: 20081010
  Serious: Yes (Other)
  Sender: FDA-Public Use
  Company Number: GR-ROCHE-556968

PATIENT
  Age: 50 Year
  Sex: Male

DRUGS (7)
  1. XENICAL [Suspect]
     Indication: WEIGHT CONTROL
     Route: 048
     Dates: start: 20080401, end: 20080402
  2. GLUCOPHAGE [Concomitant]
  3. KARVEA [Concomitant]
  4. CONTROLOC [Concomitant]
  5. VASCASE [Concomitant]
  6. NOVOLOG MIX 70/30 [Concomitant]
     Dosage: DRUG: NOVOMIX FLEXPEN 30
  7. NOVOLOG MIX 70/30 [Concomitant]
     Dosage: DRUG: NOVOMIX FLEXPEN 30

REACTIONS (4)
  - BLOOD GLUCOSE DECREASED [None]
  - DIZZINESS [None]
  - HYPERHIDROSIS [None]
  - MALAISE [None]
